FAERS Safety Report 4705162-4 (Version None)
Quarter: 2005Q3

REPORT INFORMATION
  Report Type: 
  Country: None (occurrence: None)
  Receive Date: 20050701
  Receipt Date: 20050525
  Transmission Date: 20060218
  Serious: Yes (Life-Threatening, Other)
  Sender: FDA-Public Use
  Company Number: 2005AP03041

PATIENT
  Age: 28058 Day
  Sex: Male

DRUGS (8)
  1. CARBOCAINE [Suspect]
     Indication: EPIDURAL ANAESTHESIA
     Dosage: GIVEN AT L 4/5 INTERSPACE
     Route: 008
     Dates: start: 20010502, end: 20010502
  2. CARBOCAINE [Suspect]
     Dosage: GIVEN AT L5 - S1 INTERSPACE
     Route: 008
     Dates: start: 20010530, end: 20010530
  3. SISCARD [Concomitant]
     Indication: HYPERTENSION
     Route: 048
     Dates: start: 20010228
  4. EUGLUCON [Concomitant]
     Indication: DIABETES MELLITUS
     Route: 048
     Dates: start: 20010228
  5. CARDENALIN [Concomitant]
     Indication: HYPERTENSION
     Route: 048
     Dates: start: 20010228
  6. GASTER [Concomitant]
     Indication: GASTRITIS
     Route: 048
     Dates: start: 20010228
  7. TANATRIL [Concomitant]
     Indication: HYPERTENSION
     Route: 048
     Dates: start: 20010228
  8. KINEDAK [Concomitant]
     Indication: DIABETES MELLITUS
     Route: 048
     Dates: start: 20010228

REACTIONS (5)
  - ANAPHYLACTIC REACTION [None]
  - HYPOTENSION [None]
  - LOSS OF CONSCIOUSNESS [None]
  - POISONING [None]
  - SHOCK [None]
